FAERS Safety Report 21957807 (Version 4)
Quarter: 2023Q2

REPORT INFORMATION
  Report Type: Spontaneous
  Country: JP (occurrence: JP)
  Receive Date: 20230206
  Receipt Date: 20230519
  Transmission Date: 20230721
  Serious: Yes (Hospitalization, Other)
  Sender: FDA-Public Use
  Company Number: JP-GSKNCCC-Case-01661399_AE-66962

PATIENT

DRUGS (4)
  1. SERETIDE [Suspect]
     Active Substance: FLUTICASONE PROPIONATE\SALMETEROL XINAFOATE
     Indication: Asthma
     Dosage: UNK, BID, 1 INHALATION IN THE MORNING AND EVENING
     Route: 055
     Dates: start: 20180205
  2. THEOLONG TABLETS [Concomitant]
     Indication: Asthma
     Dosage: 200 MG
     Route: 048
     Dates: start: 1998
  3. MUCOSOLVAN L TABLET [Concomitant]
     Indication: Asthma
     Dosage: 45 MG
     Route: 048
     Dates: start: 1998
  4. AMLODIPINE BESYLATE [Concomitant]
     Active Substance: AMLODIPINE BESYLATE
     Indication: Hypertension
     Dosage: 5 MG, BID
     Route: 048
     Dates: start: 2004

REACTIONS (1)
  - Spinal compression fracture [Recovered/Resolved]

NARRATIVE: CASE EVENT DATE: 20221101
